FAERS Safety Report 20968378 (Version 1)
Quarter: 2022Q2

REPORT INFORMATION
  Report Type: Other
  Country: SK (occurrence: None)
  Receive Date: 20220616
  Receipt Date: 20220616
  Transmission Date: 20220721
  Serious: Yes (Hospitalization, Other)
  Sender: FDA-Public Use
  Company Number: SK-NOVPHSZ-PHHY2018SK005539

PATIENT
  Age: 80 Year
  Sex: Male

DRUGS (9)
  1. METFORMIN [Suspect]
     Active Substance: METFORMIN HYDROCHLORIDE
     Indication: Atrial fibrillation
  2. METFORMIN [Suspect]
     Active Substance: METFORMIN HYDROCHLORIDE
     Indication: Hypertension
  3. METFORMIN [Suspect]
     Active Substance: METFORMIN HYDROCHLORIDE
     Indication: Diabetes mellitus
  4. ASPIRIN [Suspect]
     Active Substance: ASPIRIN
     Indication: Atrial fibrillation
  5. ASPIRIN [Suspect]
     Active Substance: ASPIRIN
     Indication: Diabetes mellitus
  6. ASPIRIN [Suspect]
     Active Substance: ASPIRIN
     Indication: Hypertension
  7. RAMIPRIL [Suspect]
     Active Substance: RAMIPRIL
     Indication: Diabetes mellitus
     Route: 048
  8. RAMIPRIL [Suspect]
     Active Substance: RAMIPRIL
     Indication: Atrial fibrillation
  9. RAMIPRIL [Suspect]
     Active Substance: RAMIPRIL
     Indication: Hypertension

REACTIONS (4)
  - Hemiplegia [Unknown]
  - Embolic stroke [Unknown]
  - Basilar artery thrombosis [Recovered/Resolved]
  - Product use in unapproved indication [Unknown]
